FAERS Safety Report 9206262 (Version 3)
Quarter: 2013Q2

REPORT INFORMATION
  Report Type: Spontaneous
  Country: US (occurrence: None)
  Receive Date: 20130401
  Receipt Date: 20130507
  Transmission Date: 20140414
  Serious: Yes (Other)
  Sender: FDA-Public Use
  Company Number: US-1197273

PATIENT
  Age: 58 Year
  Sex: Male
  Weight: 90.72 kg

DRUGS (2)
  1. DUREZOL [Suspect]
     Indication: UVEITIS
     Route: 047
     Dates: start: 20130206, end: 20130306
  2. COSOPT [Concomitant]

REACTIONS (6)
  - Corneal abrasion [None]
  - Corneal disorder [None]
  - Photophobia [None]
  - Headache [None]
  - Blister [None]
  - Ulcerative keratitis [None]
